FAERS Safety Report 9918672 (Version 3)
Quarter: 2015Q2

REPORT INFORMATION
  Report Type: Spontaneous
  Country: CO (occurrence: CO)
  Receive Date: 20140224
  Receipt Date: 20150513
  Transmission Date: 20150821
  Serious: Yes (Other)
  Sender: FDA-Public Use
  Company Number: CO-AMGEN-COLSP2014012570

PATIENT
  Age: 71 Year
  Sex: Female

DRUGS (4)
  1. CALCITRIOL. [Concomitant]
     Active Substance: CALCITRIOL
     Dosage: UNK
  2. ALENDRONIC [Concomitant]
     Dosage: UNK
  3. ARAVA [Concomitant]
     Active Substance: LEFLUNOMIDE
     Dosage: UNK
  4. ENBREL [Suspect]
     Active Substance: ETANERCEPT
     Indication: RHEUMATOID ARTHRITIS
     Dosage: 50 MG, WEEKLY
     Route: 058
     Dates: start: 201306, end: 20131129

REACTIONS (7)
  - Rheumatoid arthritis [Not Recovered/Not Resolved]
  - Erythema [Not Recovered/Not Resolved]
  - Arthralgia [Recovering/Resolving]
  - Drug dose omission [Not Recovered/Not Resolved]
  - Pyrexia [Not Recovered/Not Resolved]
  - Joint swelling [Not Recovered/Not Resolved]
  - Swelling [Not Recovered/Not Resolved]

NARRATIVE: CASE EVENT DATE: 201312
